FAERS Safety Report 9697520 (Version 3)
Quarter: 2021Q2

REPORT INFORMATION
  Report Type: Report from Study
  Country: CA (occurrence: CA)
  Receive Date: 20131120
  Receipt Date: 20210622
  Transmission Date: 20210717
  Serious: Yes (Hospitalization, Other)
  Sender: FDA-Public Use
  Company Number: CA-JNJFOC-20131109562

PATIENT
  Age: 45 Year
  Sex: Female
  Weight: 118 kg

DRUGS (4)
  1. REMICADE [Suspect]
     Active Substance: INFLIXIMAB
     Dosage: 4TH INFUSION
     Route: 042
     Dates: start: 20131112
  2. REMICADE [Suspect]
     Active Substance: INFLIXIMAB
     Dosage: 1000 MG
     Route: 042
     Dates: start: 20201209
  3. REMICADE [Suspect]
     Active Substance: INFLIXIMAB
     Dosage: 3 RD INFUSION
     Route: 042
     Dates: start: 20130918
  4. REMICADE [Suspect]
     Active Substance: INFLIXIMAB
     Indication: CROHN^S DISEASE
     Route: 042
     Dates: start: 201309

REACTIONS (7)
  - Drug level decreased [Unknown]
  - Erythema nodosum [Unknown]
  - Fistula [Unknown]
  - Anal fistula [Unknown]
  - Candida infection [Unknown]
  - Eczema [Unknown]
  - Fungal infection [Unknown]

NARRATIVE: CASE EVENT DATE: 201310
